FAERS Safety Report 13134869 (Version 2)
Quarter: 2017Q1

REPORT INFORMATION
  Report Type: Spontaneous
  Country: DE (occurrence: DE)
  Receive Date: 20170120
  Receipt Date: 20170220
  Transmission Date: 20170428
  Serious: Yes (Other)
  Sender: FDA-Public Use
  Company Number: DE-UCBSA-2017001928

PATIENT
  Age: 56 Year
  Sex: Male

DRUGS (5)
  1. CANDESARTAN [Concomitant]
     Active Substance: CANDESARTAN
     Indication: HYPERTENSION
     Dosage: 32 MG, ONCE DAILY (QD)
     Route: 048
  2. LEVETIRACETAM STADA [Suspect]
     Active Substance: LEVETIRACETAM
     Indication: SEIZURE
     Dosage: 500 MG, 2X/DAY (BID)
     Route: 048
     Dates: start: 20161204, end: 20161208
  3. HCT [Concomitant]
     Active Substance: HYDROCHLOROTHIAZIDE
     Indication: HYPERTENSION
     Dosage: 25 MG, ONCE DAILY (QD)
     Route: 048
  4. DORMICUM [Concomitant]
     Indication: SEIZURE
     Dosage: 3 MG, TOTAL
     Dates: start: 20161204
  5. ATORVASTATIN [Concomitant]
     Active Substance: ATORVASTATIN
     Indication: HYPOLIPIDAEMIA
     Dosage: 20 MG, ONCE DAILY (QD)
     Route: 048
     Dates: end: 20161208

REACTIONS (1)
  - Rhabdomyolysis [Recovered/Resolved]

NARRATIVE: CASE EVENT DATE: 20161204
